FAERS Safety Report 18611220 (Version 1)
Quarter: 2020Q4

REPORT INFORMATION
  Report Type: Spontaneous
  Country: US (occurrence: US)
  Receive Date: 20201212
  Receipt Date: 20201212
  Transmission Date: 20210114
  Serious: Yes (Hospitalization)
  Sender: FDA-Public Use
  Company Number: None

PATIENT
  Sex: Female
  Weight: 126.2 kg

DRUGS (1)
  1. RITUXIMAB (MOAB C2B8 ANTI CD20, CHIMERIC) (687451) 1400MG [Suspect]
     Active Substance: RITUXIMAB
     Dates: end: 20200828

REACTIONS (8)
  - Rhinorrhoea [None]
  - COVID-19 [None]
  - Neutropenia [None]
  - Nasal congestion [None]
  - Cough [None]
  - Nausea [None]
  - Diarrhoea [None]
  - Asthenia [None]

NARRATIVE: CASE EVENT DATE: 20201116
